FAERS Safety Report 16276447 (Version 1)
Quarter: 2019Q2

REPORT INFORMATION
  Report Type: Spontaneous
  Country: US (occurrence: US)
  Receive Date: 20190505
  Receipt Date: 20190505
  Transmission Date: 20190711
  Serious: Yes (Hospitalization)
  Sender: FDA-Public Use
  Company Number: None

PATIENT
  Age: 65 Year
  Sex: Female
  Weight: 87.75 kg

DRUGS (2)
  1. PEPTO-BISMOL [Suspect]
     Active Substance: BISMUTH SUBSALICYLATE
     Indication: IRRITABLE BOWEL SYNDROME
     Route: 048
     Dates: start: 20190322
  2. DIVALPROEX SODIUM ER GENERIC FOR DEPAKOTE [Suspect]
     Active Substance: DIVALPROEX SODIUM
     Indication: BIPOLAR DISORDER
     Dosage: ?          QUANTITY:3 TABLET(S);?
     Route: 048
     Dates: start: 20070615

REACTIONS (6)
  - Muscular weakness [None]
  - Drug interaction [None]
  - Contraindicated product administered [None]
  - Motor dysfunction [None]
  - Urinary incontinence [None]
  - Hallucination [None]

NARRATIVE: CASE EVENT DATE: 20190325
